FAERS Safety Report 4952716-6 (Version None)
Quarter: 2006Q1

REPORT INFORMATION
  Report Type: 
  Country: None (occurrence: None)
  Receive Date: 20060324
  Receipt Date: 20060314
  Transmission Date: 20060701
  Serious: Yes (Other)
  Sender: FDA-Public Use
  Company Number: 2006UW04601

PATIENT
  Sex: Female

DRUGS (1)
  1. EMLA [Suspect]
     Indication: SKIN COSMETIC PROCEDURE
     Dosage: 1 1/2 TUBE
     Route: 061

REACTIONS (2)
  - BLOOD GLUCOSE ABNORMAL [None]
  - LOSS OF CONSCIOUSNESS [None]
